FAERS Safety Report 5441961-1 (Version None)
Quarter: 2007Q3

REPORT INFORMATION
  Report Type: 
  Country: None (occurrence: None)
  Receive Date: 20070904
  Receipt Date: 20070829
  Transmission Date: 20080115
  Serious: Yes (Hospitalization)
  Sender: FDA-Public Use
  Company Number: B0474519A

PATIENT
  Age: 56 Year
  Sex: Female

DRUGS (10)
  1. MODACIN [Suspect]
     Dosage: 1G TWICE PER DAY
     Route: 042
     Dates: start: 20070523, end: 20070526
  2. CLOBAZAM [Suspect]
     Indication: DRUG USE FOR UNKNOWN INDICATION
     Route: 048
     Dates: start: 20070422, end: 20070526
  3. DEPAKENE [Suspect]
     Indication: DRUG USE FOR UNKNOWN INDICATION
     Route: 048
     Dates: start: 20070416, end: 20070526
  4. PHENOBARBITAL TAB [Suspect]
     Indication: DRUG USE FOR UNKNOWN INDICATION
     Route: 048
     Dates: start: 20070426, end: 20070531
  5. FAMOTIDINE [Concomitant]
     Indication: DRUG USE FOR UNKNOWN INDICATION
     Route: 048
  6. MUCOSTA [Concomitant]
     Indication: DRUG USE FOR UNKNOWN INDICATION
     Route: 048
  7. LOXONIN [Concomitant]
     Route: 065
  8. LENDORMIN [Concomitant]
     Route: 048
  9. DEPAS [Concomitant]
     Route: 048
  10. PRIMPERAN INJ [Concomitant]
     Route: 065

REACTIONS (10)
  - DRUG ERUPTION [None]
  - EOSINOPHIL COUNT INCREASED [None]
  - GENERALISED ERYTHEMA [None]
  - HYPEREOSINOPHILIC SYNDROME [None]
  - HYPERSENSITIVITY [None]
  - LIVER DISORDER [None]
  - MUCOSAL EROSION [None]
  - NAUSEA [None]
  - ORAL PAIN [None]
  - STEVENS-JOHNSON SYNDROME [None]
